FAERS Safety Report 7364764-X (Version None)
Quarter: 2011Q1

REPORT INFORMATION
  Report Type: 
  Country: None (occurrence: None)
  Receive Date: 20110316
  Receipt Date: 20110316
  Transmission Date: 20110831
  Serious: Yes (Hospitalization)
  Sender: FDA-Public Use
  Company Number: None

PATIENT
  Sex: Female

DRUGS (2)
  1. AMPYRA [Suspect]
     Indication: MULTIPLE SCLEROSIS
     Dosage: 10MG BID PO
     Route: 048
     Dates: start: 20101028, end: 20110130
  2. AMPYRA [Suspect]

REACTIONS (3)
  - ULCER HAEMORRHAGE [None]
  - BLOOD COUNT ABNORMAL [None]
  - NAUSEA [None]
